FAERS Safety Report 10792049 (Version 1)
Quarter: 2015Q1

REPORT INFORMATION
  Report Type: Spontaneous
  Country: GB (occurrence: GB)
  Receive Date: 20150213
  Receipt Date: 20150213
  Transmission Date: 20150721
  Serious: Yes (Other)
  Sender: FDA-Public Use
  Company Number: GB-JNJFOC-20150204242

PATIENT
  Age: 87 Year
  Sex: Female
  Weight: 50 kg

DRUGS (14)
  1. FYBOGEL [Concomitant]
     Active Substance: PLANTAGO OVATA SEED
     Route: 065
     Dates: start: 20150120
  2. DOXYCYCLINE. [Concomitant]
     Active Substance: DOXYCYCLINE
     Route: 065
     Dates: start: 20141230, end: 20150114
  3. LANSOPRAZOLE. [Concomitant]
     Active Substance: LANSOPRAZOLE
     Route: 065
     Dates: start: 20141121, end: 20150113
  4. PIROXICAM. [Concomitant]
     Active Substance: PIROXICAM
     Route: 065
     Dates: start: 20150114
  5. RAMIPRIL. [Concomitant]
     Active Substance: RAMIPRIL
     Route: 065
     Dates: start: 20141003, end: 20141031
  6. LORATADINE. [Concomitant]
     Active Substance: LORATADINE
     Route: 065
     Dates: start: 20150120
  7. RIVAROXABAN [Suspect]
     Active Substance: RIVAROXABAN
     Indication: PRODUCT USED FOR UNKNOWN INDICATION
     Route: 048
     Dates: start: 20141202
  8. BECLOMETASONE [Concomitant]
     Active Substance: BECLOMETHASONE DIPROPIONATE
     Route: 065
     Dates: start: 20141009, end: 20141128
  9. BENDROFLUMETHIAZIDE [Concomitant]
     Active Substance: BENDROFLUMETHIAZIDE
     Route: 065
     Dates: start: 20140905, end: 20150105
  10. AMLODIPINE [Concomitant]
     Active Substance: AMLODIPINE BESYLATE
     Route: 065
     Dates: start: 20141208, end: 20150105
  11. AMOXICILLINE [Concomitant]
     Active Substance: AMOXICILLIN
     Route: 065
     Dates: start: 20141223, end: 20141230
  12. E45 [Concomitant]
     Active Substance: LANOLIN\LIGHT MINERAL OIL\PARAFFIN
     Route: 065
     Dates: start: 20141111, end: 20141209
  13. PARACETAMOL [Concomitant]
     Active Substance: ACETAMINOPHEN
     Route: 065
     Dates: start: 20141009, end: 20150116
  14. PROCHLORPERAZINE. [Concomitant]
     Active Substance: PROCHLORPERAZINE
     Route: 065
     Dates: start: 20141107, end: 20141121

REACTIONS (2)
  - Rash [Not Recovered/Not Resolved]
  - Pruritus allergic [Not Recovered/Not Resolved]

NARRATIVE: CASE EVENT DATE: 20150122
